FAERS Safety Report 13179432 (Version 3)
Quarter: 2017Q1

REPORT INFORMATION
  Report Type: Report from Study
  Country: JP (occurrence: JP)
  Receive Date: 20170202
  Receipt Date: 20170322
  Transmission Date: 20170428
  Serious: Yes (Other)
  Sender: FDA-Public Use
  Company Number: JP-UCBSA-2017003412

PATIENT
  Age: 2 Year
  Sex: Female
  Weight: 12 kg

DRUGS (4)
  1. EXCEGRAN [Concomitant]
     Active Substance: ZONISAMIDE
     Indication: COMPLEX PARTIAL SEIZURES
     Dosage: 80 MG DAILY
     Route: 048
  2. LEVETIRACETAM. [Suspect]
     Active Substance: LEVETIRACETAM
     Indication: COMPLEX PARTIAL SEIZURES
     Dosage: 60 MG, 2X/DAY (BID)
     Route: 048
     Dates: start: 20151211, end: 20160329
  3. MYSTAN [Concomitant]
     Active Substance: CLOBAZAM
     Indication: PRODUCT USED FOR UNKNOWN INDICATION
     Dosage: UNK
     Dates: end: 20160318
  4. LEVETIRACETAM. [Suspect]
     Active Substance: LEVETIRACETAM
     Dosage: 300 MG, 2X/DAY (BID)
     Route: 048
     Dates: start: 20160330, end: 20160519

REACTIONS (3)
  - Cortical dysplasia [Recovered/Resolved]
  - Off label use [Unknown]
  - Glioma [Recovered/Resolved]

NARRATIVE: CASE EVENT DATE: 20151211
